FAERS Safety Report 7686137-2 (Version None)
Quarter: 2011Q3

REPORT INFORMATION
  Report Type: 
  Country: None (occurrence: None)
  Receive Date: 20110811
  Receipt Date: 20110729
  Transmission Date: 20111222
  Serious: Yes (Hospitalization)
  Sender: FDA-Public Use
  Company Number: 2011MA011445

PATIENT
  Age: 39 Year
  Sex: Female

DRUGS (2)
  1. ZYPREXA [Concomitant]
  2. CHLORDIAZEPOXIDE HYDROCHLORIDE AND CLIDINIUM BROMIDE CAPSULES (ATLLC) [Suspect]
     Indication: ALCOHOL ABUSE
     Dates: start: 20110623, end: 20110624

REACTIONS (4)
  - ALTERED STATE OF CONSCIOUSNESS [None]
  - ELECTROLYTE IMBALANCE [None]
  - BLOOD POTASSIUM DECREASED [None]
  - HYPOTENSION [None]
